FAERS Safety Report 15665168 (Version 2)
Quarter: 2018Q4

REPORT INFORMATION
  Report Type: Spontaneous
  Country: US (occurrence: US)
  Receive Date: 20181128
  Receipt Date: 20181203
  Transmission Date: 20190205
  Serious: Yes (Other)
  Sender: FDA-Public Use
  Company Number: US-PFIZER INC-2018485719

PATIENT
  Age: 23 Year
  Sex: Male

DRUGS (2)
  1. SULFAMETHOXAZOLE/TRIMETHOPRIM [Suspect]
     Active Substance: SULFAMETHOXAZOLE\TRIMETHOPRIM
     Indication: PNEUMOCYSTIS JIROVECII PNEUMONIA
     Dosage: UNK
     Route: 048
  2. SULFAMETHOXAZOLE/TRIMETHOPRIM [Suspect]
     Active Substance: SULFAMETHOXAZOLE\TRIMETHOPRIM
     Dosage: 1 DF, UNK (TABLET, RECHALLENGE DOSE)
     Route: 048

REACTIONS (7)
  - Pyrexia [Unknown]
  - Shock [Unknown]
  - Hypoxia [Unknown]
  - Rash [Unknown]
  - Chills [Unknown]
  - Lung infiltration [Unknown]
  - Hypotension [Unknown]
